FAERS Safety Report 19500524 (Version 1)
Quarter: 2021Q3

REPORT INFORMATION
  Report Type: Spontaneous
  Country: US (occurrence: US)
  Receive Date: 20210706
  Receipt Date: 20210706
  Transmission Date: 20211014
  Serious: No
  Sender: FDA-Public Use
  Company Number: US-SUNOVION-2021SUN002240

PATIENT

DRUGS (1)
  1. XOPENEX [Suspect]
     Active Substance: LEVALBUTEROL HYDROCHLORIDE
     Dosage: UNK, BID
     Route: 055

REACTIONS (3)
  - Device delivery system issue [Unknown]
  - Drug ineffective [Unknown]
  - Device issue [Unknown]
